FAERS Safety Report 5054341-8 (Version None)
Quarter: 2006Q2

REPORT INFORMATION
  Report Type: 
  Country: None (occurrence: None)
  Receive Date: 20060616
  Receipt Date: 20060328
  Transmission Date: 20061013
  Serious: No
  Sender: FDA-Public Use
  Company Number: 223533

PATIENT
  Age: 78 Year
  Sex: Male
  Weight: 77.6 kg

DRUGS (1)
  1. AVASTIN [Suspect]
     Indication: COLON CANCER
     Dosage: 400 MG,Q2W,INTRAVENOUS
     Route: 042
     Dates: start: 20050809

REACTIONS (1)
  - INJECTION SITE REACTION [None]
